FAERS Safety Report 20529127 (Version 1)
Quarter: 2022Q1

REPORT INFORMATION
  Report Type: Spontaneous
  Country: US (occurrence: US)
  Receive Date: 20220228
  Receipt Date: 20220228
  Transmission Date: 20220423
  Serious: No
  Sender: FDA-Public Use
  Company Number: US-PFIZER INC-2017056346

PATIENT
  Age: 78 Year
  Sex: Female

DRUGS (11)
  1. IBRANCE [Suspect]
     Active Substance: PALBOCICLIB
     Indication: Breast cancer female
     Dosage: 125 MG, CYCLIC (ONCE A DAY, FOR 21 DAYS ON, FOLLOWED BY 7 DAYS OFF)
     Route: 048
  2. IBRANCE [Suspect]
     Active Substance: PALBOCICLIB
     Dosage: 75 MG, CYCLIC
  3. LETROZOLE [Concomitant]
     Active Substance: LETROZOLE
     Indication: Neoplasm malignant
     Dosage: UNK, 1X/DAY
  4. FEMARA [Concomitant]
     Active Substance: LETROZOLE
     Dosage: UNK, 1X/DAY
     Route: 048
  5. XGEVA [Concomitant]
     Active Substance: DENOSUMAB
     Dosage: UNK, EVERY 3 MONTHS
     Route: 058
  6. ASPIRIN [Concomitant]
     Active Substance: ASPIRIN
     Dosage: 81 MG, DAILY (1 P.O. (PER ORAL) Q. (EVERY) DAY)
     Route: 048
  7. CALCIUM [Concomitant]
     Active Substance: CALCIUM
     Indication: Vitamin supplementation
     Dosage: 1250 MG, DAILY (1 P.O. (PER ORAL) Q. (EVERY) DAY)
     Route: 048
  8. PRAVASTATIN [Concomitant]
     Active Substance: PRAVASTATIN
     Indication: Blood cholesterol
     Dosage: 80 MG, DAILY (1 P.O. (PER ORAL) Q. (EVERY) DAY)
     Route: 048
  9. VITAMIN D3 [Concomitant]
     Active Substance: CHOLECALCIFEROL
     Indication: Vitamin supplementation
     Dosage: 5000 IU, DAILY (1 P.O. (PER ORAL) Q (EVERY) DAY)
     Route: 048
  10. ZANTAC [Concomitant]
     Active Substance: RANITIDINE HYDROCHLORIDE
     Dosage: UNK, AS NEEDED
  11. ZIAC [Concomitant]
     Active Substance: BISOPROLOL FUMARATE\HYDROCHLOROTHIAZIDE
     Dosage: UNK, DAILY (10MG-6.25MG)
     Route: 048

REACTIONS (8)
  - Product dose omission issue [Unknown]
  - Alopecia [Unknown]
  - Hot flush [Unknown]
  - Rash [Recovered/Resolved]
  - Nasopharyngitis [Unknown]
  - Nausea [Unknown]
  - Decreased appetite [Recovered/Resolved]
  - Memory impairment [Unknown]
